FAERS Safety Report 17200933 (Version 2)
Quarter: 2019Q4

REPORT INFORMATION
  Report Type: Spontaneous
  Country: CA (occurrence: CA)
  Receive Date: 20191226
  Receipt Date: 20191230
  Transmission Date: 20200122
  Serious: Yes (Death, Life-Threatening, Hospitalization, Other)
  Sender: FDA-Public Use
  Company Number: CA-PFIZER INC-2019547784

PATIENT

DRUGS (1)
  1. EPINEPHRINE. [Suspect]
     Active Substance: EPINEPHRINE
     Indication: PULSELESS ELECTRICAL ACTIVITY
     Dosage: 4 DF, UNK (FOUR DOSES)

REACTIONS (1)
  - Drug ineffective [Fatal]
